FAERS Safety Report 25845679 (Version 3)
Quarter: 2025Q4

REPORT INFORMATION
  Report Type: Spontaneous
  Country: NZ (occurrence: NZ)
  Receive Date: 20250925
  Receipt Date: 20251021
  Transmission Date: 20260118
  Serious: Yes (Death, Other)
  Sender: CSL BEHRING
  Company Number: NZ-BEH-2025219199

PATIENT
  Age: 67 Year
  Sex: Female

DRUGS (3)
  1. COAGULATION FACTOR IX HUMAN\COAGULATION FACTOR VII HUMAN\COAGULATION F [Suspect]
     Active Substance: COAGULATION FACTOR IX HUMAN\COAGULATION FACTOR VII HUMAN\COAGULATION FACTOR X HUMAN\PROTEIN C\PROTEI
     Indication: Procoagulant therapy
     Dosage: 2000 IU
     Route: 042
     Dates: start: 20250915, end: 20250915
  2. COAGULATION FACTOR IX HUMAN\COAGULATION FACTOR VII HUMAN\COAGULATION F [Suspect]
     Active Substance: COAGULATION FACTOR IX HUMAN\COAGULATION FACTOR VII HUMAN\COAGULATION FACTOR X HUMAN\PROTEIN C\PROTEI
     Indication: Procoagulant therapy
     Dosage: 2000 IU
     Route: 042
     Dates: start: 20250915, end: 20250915
  3. RIVAROXABAN [Concomitant]
     Active Substance: RIVAROXABAN

REACTIONS (18)
  - Haemorrhage [Fatal]
  - Cardiac arrest [Fatal]
  - Arrhythmia [Fatal]
  - Atrial fibrillation [Fatal]
  - Heart failure with reduced ejection fraction [Fatal]
  - Aortic stenosis [Fatal]
  - Pulmonary oedema [Fatal]
  - Ventricular fibrillation [Unknown]
  - Pulseless electrical activity [Unknown]
  - Cardiovascular insufficiency [Unknown]
  - Obstructive airways disorder [Unknown]
  - Respiratory tract haemorrhage [Unknown]
  - Apnoea [Unknown]
  - Cardiac dysfunction [Fatal]
  - Product container issue [Unknown]
  - Wrong technique in device usage process [Unknown]
  - Device issue [Unknown]
  - Off label use [Unknown]

NARRATIVE: CASE EVENT DATE: 20250915
